FAERS Safety Report 19272238 (Version 1)
Quarter: 2021Q2

REPORT INFORMATION
  Report Type: Report from Study
  Country: US (occurrence: US)
  Receive Date: 20210518
  Receipt Date: 20210518
  Transmission Date: 20210717
  Serious: No
  Sender: FDA-Public Use
  Company Number: US-SUNOVION-2021SUN001625

PATIENT
  Age: 80 Year
  Sex: Female

DRUGS (2)
  1. KYNMOBI [Suspect]
     Active Substance: APOMORPHINE HYDROCHLORIDE
     Indication: PARKINSON^S DISEASE
     Dosage: 15 MG
     Route: 060
     Dates: start: 20210428, end: 20210428
  2. KYNMOBI [Suspect]
     Active Substance: APOMORPHINE HYDROCHLORIDE
     Dosage: 10 MG
     Route: 060
     Dates: start: 20210423, end: 20210423

REACTIONS (5)
  - Confusional state [Unknown]
  - Somnolence [Unknown]
  - Head discomfort [Unknown]
  - Delusion [Unknown]
  - Dizziness [Unknown]

NARRATIVE: CASE EVENT DATE: 20210426
